FAERS Safety Report 7918744-3 (Version None)
Quarter: 2011Q4

REPORT INFORMATION
  Report Type: 
  Country: None (occurrence: None)
  Receive Date: 20111116
  Receipt Date: 20110317
  Transmission Date: 20120403
  Serious: Yes (Death, Other)
  Sender: FDA-Public Use
  Company Number: MX-BRISTOL-MYERS SQUIBB COMPANY-15603418

PATIENT
  Age: 51 Year
  Sex: Female

DRUGS (2)
  1. OHRENCIA [Suspect]
     Indication: RAYNAUD'S PHENOMENON
     Dosage: 3 AMPOULES TOTAL DOSE
     Route: 042
     Dates: start: 20110201
  2. OHRENCIA [Suspect]
     Indication: SCLERODERMA
     Dosage: 3 AMPOULES TOTAL DOSE
     Route: 042
     Dates: start: 20110201

REACTIONS (4)
  - PSYCHOTIC DISORDER [None]
  - HAEMATEMESIS [None]
  - DYSPEPSIA [None]
  - HYPOVOLAEMIC SHOCK [None]
